FAERS Safety Report 11333615 (Version 1)
Quarter: 2015Q3

REPORT INFORMATION
  Report Type: Spontaneous
  Country: US (occurrence: US)
  Receive Date: 20150803
  Receipt Date: 20150803
  Transmission Date: 20151125
  Serious: No
  Sender: FDA-Public Use
  Company Number: US-ELI_LILLY_AND_COMPANY-US200801004670

PATIENT
  Sex: Male
  Weight: 90.7 kg

DRUGS (3)
  1. ZYPREXA [Suspect]
     Active Substance: OLANZAPINE
     Dosage: 25 MG, UNK
  2. ARIPIPRAZOLE. [Concomitant]
     Active Substance: ARIPIPRAZOLE
     Dates: start: 2004
  3. ZYPREXA [Suspect]
     Active Substance: OLANZAPINE
     Indication: HALLUCINATION, AUDITORY
     Dosage: 10 MG, UNK
     Dates: start: 1996

REACTIONS (4)
  - Diabetes mellitus [Not Recovered/Not Resolved]
  - Endocrine disorder [Unknown]
  - Prescribed overdose [Not Recovered/Not Resolved]
  - Blood glucose abnormal [Unknown]
